FAERS Safety Report 4866422-X (Version None)
Quarter: 2005Q4

REPORT INFORMATION
  Report Type: 
  Country: None (occurrence: None)
  Receive Date: 20051227
  Receipt Date: 20051005
  Transmission Date: 20060501
  Serious: Yes (Disabling)
  Sender: FDA-Public Use
  Company Number: US-MERCK-0510USA04738

PATIENT
  Age: 58 Year
  Sex: Male
  Weight: 72 kg

DRUGS (1)
  1. VIOXX [Suspect]
     Indication: PAIN
     Route: 048
     Dates: start: 20000101, end: 20041201

REACTIONS (14)
  - ACCIDENT AT WORK [None]
  - BACK PAIN [None]
  - CARDIOVASCULAR DISORDER [None]
  - CATARACT [None]
  - DIZZINESS [None]
  - HEADACHE [None]
  - MEMORY IMPAIRMENT [None]
  - MUSCULAR WEAKNESS [None]
  - NECK PAIN [None]
  - OSTEOARTHRITIS [None]
  - PARAESTHESIA [None]
  - THROMBOSIS [None]
  - TINEA VERSICOLOUR [None]
  - VISION BLURRED [None]
